FAERS Safety Report 15812780 (Version 5)
Quarter: 2019Q1

REPORT INFORMATION
  Report Type: Spontaneous
  Country: US (occurrence: US)
  Receive Date: 20190111
  Receipt Date: 20190301
  Transmission Date: 20190417
  Serious: Yes (Other)
  Sender: FDA-Public Use
  Company Number: US-BAYER-2019-008944

PATIENT
  Age: 37 Year
  Sex: Female

DRUGS (1)
  1. KYLEENA [Suspect]
     Active Substance: LEVONORGESTREL
     Indication: CONTRACEPTION
     Dosage: 17.5 MCG/24HR, CONT
     Route: 015
     Dates: start: 20181019, end: 20181213

REACTIONS (8)
  - Abdominal pain lower [None]
  - Genital haemorrhage [Not Recovered/Not Resolved]
  - Pelvic pain [None]
  - Device allergy [None]
  - Adnexa uteri pain [None]
  - Abdominal pain lower [Not Recovered/Not Resolved]
  - Vaginal haemorrhage [None]
  - Ovarian cyst [None]

NARRATIVE: CASE EVENT DATE: 2018
